FAERS Safety Report 23181264 (Version 1)
Quarter: 2023Q4

REPORT INFORMATION
  Report Type: Spontaneous
  Country: FR (occurrence: FR)
  Receive Date: 20231114
  Receipt Date: 20231114
  Transmission Date: 20240109
  Serious: Yes (Other)
  Sender: FDA-Public Use
  Company Number: FR-CHEPLA-2023014272

PATIENT
  Age: 72 Year
  Sex: Female

DRUGS (4)
  1. HYDROXYUREA [Suspect]
     Active Substance: HYDROXYUREA
     Indication: Myeloproliferative neoplasm
     Dosage: INCREASED
     Dates: start: 202106
  2. HYDROXYUREA [Suspect]
     Active Substance: HYDROXYUREA
     Indication: Myelodysplastic syndrome
     Dosage: INCREASED
     Dates: start: 202106
  3. HYDROXYUREA [Suspect]
     Active Substance: HYDROXYUREA
     Indication: Myeloproliferative neoplasm
     Dosage: DAILY DOSE: 500 MILLIGRAM
  4. HYDROXYUREA [Suspect]
     Active Substance: HYDROXYUREA
     Indication: Myelodysplastic syndrome
     Dosage: DAILY DOSE: 500 MILLIGRAM

REACTIONS (2)
  - Bone pain [Unknown]
  - Dyspnoea [Unknown]

NARRATIVE: CASE EVENT DATE: 20220401
